FAERS Safety Report 8322522-3 (Version None)
Quarter: 2012Q2

REPORT INFORMATION
  Report Type: 
  Country: None (occurrence: None)
  Receive Date: 20120430
  Receipt Date: 20120423
  Transmission Date: 20120825
  Serious: Yes (Other)
  Sender: FDA-Public Use
  Company Number: US-ASTRAZENECA-2012SE26530

PATIENT
  Age: 70 Year
  Sex: Female
  Weight: 65.8 kg

DRUGS (5)
  1. ZYRTEC [Concomitant]
     Indication: SEASONAL ALLERGY
  2. NEXIUM [Suspect]
     Indication: GASTROOESOPHAGEAL REFLUX DISEASE
     Route: 048
  3. T4 AND T3 [Concomitant]
     Indication: THYROID DISORDER
  4. LIBRAX [Concomitant]
     Indication: IRRITABLE BOWEL SYNDROME
     Dosage: 5/2.5 MG TID
  5. MICARDIS [Concomitant]
     Indication: BLOOD PRESSURE ABNORMAL

REACTIONS (10)
  - SQUAMOUS CELL CARCINOMA OF SKIN [None]
  - BREAST CANCER STAGE I [None]
  - OESOPHAGITIS [None]
  - OESOPHAGEAL MUCOSAL HYPERPLASIA [None]
  - BREAST PAIN [None]
  - BARRETT'S OESOPHAGUS [None]
  - GASTRITIS [None]
  - GASTROOESOPHAGEAL REFLUX DISEASE [None]
  - CONDITION AGGRAVATED [None]
  - OSTEOPENIA [None]
